FAERS Safety Report 6771239-5 (Version None)
Quarter: 2010Q2

REPORT INFORMATION
  Report Type: 
  Country: None (occurrence: None)
  Receive Date: 20100616
  Receipt Date: 20100608
  Transmission Date: 20101027
  Serious: Yes (Other)
  Sender: FDA-Public Use
  Company Number: GB-WYE-G06248510

PATIENT
  Age: 51 Year
  Sex: Male

DRUGS (1)
  1. REFACTO [Suspect]
     Indication: FACTOR VIII DEFICIENCY
     Dates: start: 20100401

REACTIONS (4)
  - DRUG INEFFECTIVE [None]
  - FACTOR VIII INHIBITION [None]
  - FALL [None]
  - HAEMORRHAGE [None]
